FAERS Safety Report 4709513-6 (Version None)
Quarter: 2005Q3

REPORT INFORMATION
  Report Type: 
  Country: None (occurrence: None)
  Receive Date: 20050706
  Receipt Date: 20050624
  Transmission Date: 20060218
  Serious: Yes (Hospitalization)
  Sender: FDA-Public Use
  Company Number: 2004107893

PATIENT
  Age: 43 Year
  Sex: Male
  Weight: 79 kg

DRUGS (4)
  1. SOLU-MEDROL [Suspect]
     Indication: ASTHMA
     Dosage: 60 MG (60 MG, 1 IN 1 D), INTRAVENOUS
     Route: 042
     Dates: start: 20041125, end: 20041128
  2. MEXILETINE HYDROCHLORIDE [Suspect]
     Indication: ARRHYTHMIA
     Dosage: 150 MG (3 IN 1 D), ORAL
     Route: 048
     Dates: start: 20041020, end: 20041124
  3. HUSCODE   (CHLORPHENAMINE MALEATE, DIHYDROCODEINE PHOSPHATE, METHYLEPH [Concomitant]
     Route: 048
  4. CELESTAMINE TAB [Concomitant]
     Dates: start: 20041125, end: 20041130

REACTIONS (6)
  - ASTHMA [None]
  - DRUG ERUPTION [None]
  - ENANTHEMA [None]
  - ORAL INTAKE REDUCED [None]
  - ORAL MUCOSAL ERUPTION [None]
  - SKIN TEST POSITIVE [None]
